FAERS Safety Report 22289168 (Version 1)
Quarter: 2023Q2

REPORT INFORMATION
  Report Type: Spontaneous
  Country: US (occurrence: US)
  Receive Date: 20230505
  Receipt Date: 20230505
  Transmission Date: 20230722
  Serious: Yes (Other)
  Sender: FDA-Public Use
  Company Number: US-AGIOS-2304US03339

PATIENT
  Sex: Female

DRUGS (2)
  1. PYRUKYND [Suspect]
     Active Substance: MITAPIVAT
     Indication: Product used for unknown indication
     Dosage: 20 MILLIGRAM
     Route: 065
  2. DEFEROXAMINE [Concomitant]
     Active Substance: DEFEROXAMINE MESYLATE
     Indication: Haemochromatosis

REACTIONS (2)
  - Gastric ulcer haemorrhage [Unknown]
  - Abdominal discomfort [Unknown]
